FAERS Safety Report 9465516 (Version 1)
Quarter: 2013Q3

REPORT INFORMATION
  Report Type: Spontaneous
  Country: CO (occurrence: CO)
  Receive Date: 20130820
  Receipt Date: 20130820
  Transmission Date: 20140515
  Serious: Yes (Hospitalization)
  Sender: FDA-Public Use
  Company Number: CO-009507513-1308COL007979

PATIENT
  Age: 64 Year
  Sex: Female
  Weight: 76 kg

DRUGS (8)
  1. PEG-INTRON [Suspect]
     Indication: HEPATITIS C
     Dosage: REDIPEN, FORMULATION: PREFILLED PENS, QW
     Route: 058
     Dates: start: 20130425
  2. REBETOL [Suspect]
     Indication: HEPATITIS C
     Dosage: 1200 MG, DAILY
     Route: 048
     Dates: start: 20130425
  3. VICTRELIS [Suspect]
     Indication: HEPATITIS C
     Dosage: 2400 MG QD
     Route: 048
     Dates: start: 20130425
  4. LEVOTIROXINA (LEVOTHYROXINE SODIUM) [Concomitant]
     Dosage: UNK, UNKNOWN, TOTAL DAILY DOSE: 100MCGS
     Route: 065
  5. FOLIC ACID [Concomitant]
     Dosage: UNK, UNKNOWN, TOTAL DAILY DOSE: 1MG
     Route: 065
  6. METOCLOPRAMIDE [Concomitant]
     Dosage: UNK, UNKNOWN, TOTAL DAILY DOSE: 10MGS
     Route: 065
  7. OMEPRAZOLE [Concomitant]
     Dosage: UNK, UNKNOWN,
     Route: 065
  8. FERROUS SULFATE [Suspect]

REACTIONS (1)
  - Urinary tract infection [Recovered/Resolved]
